FAERS Safety Report 11752115 (Version 1)
Quarter: 2015Q4

REPORT INFORMATION
  Report Type: Spontaneous
  Country: US (occurrence: US)
  Receive Date: 20151118
  Receipt Date: 20151118
  Transmission Date: 20160304
  Serious: Yes (Other)
  Sender: FDA-Public Use
  Company Number: US-LUNDBECK-DKLU2006553

PATIENT
  Age: 78 Year
  Sex: Female

DRUGS (1)
  1. NORTHERA [Suspect]
     Active Substance: DROXIDOPA
     Indication: PARKINSON^S DISEASE
     Route: 048
     Dates: start: 201505

REACTIONS (4)
  - Vision blurred [Unknown]
  - Dizziness [Unknown]
  - Depressed level of consciousness [Unknown]
  - Speech disorder [Unknown]

NARRATIVE: CASE EVENT DATE: 201509
